FAERS Safety Report 7626632-5 (Version None)
Quarter: 2011Q3

REPORT INFORMATION
  Report Type: 
  Country: None (occurrence: None)
  Receive Date: 20110721
  Receipt Date: 20110516
  Transmission Date: 20111222
  Serious: No
  Sender: FDA-Public Use
  Company Number: US-NOVEN-11US002466

PATIENT
  Sex: Female

DRUGS (1)
  1. FENTANYL [Suspect]
     Indication: PRODUCT USED FOR UNKNOWN INDICATION
     Dosage: 50 UG/HOUR FOR 72 HOURS
     Route: 062

REACTIONS (2)
  - PRODUCT QUALITY ISSUE [None]
  - INADEQUATE ANALGESIA [None]
